FAERS Safety Report 6470466-4 (Version None)
Quarter: 2009Q4

REPORT INFORMATION
  Report Type: 
  Country: None (occurrence: None)
  Receive Date: 20091119
  Receipt Date: 20081007
  Transmission Date: 20100525
  Serious: Yes (Hospitalization)
  Sender: FDA-Public Use
  Company Number: 2008-184461-NL

PATIENT
  Age: 35 Year
  Sex: Female
  Weight: 101 kg

DRUGS (1)
  1. IMPLANON [Suspect]
     Indication: CONTRACEPTION
     Dosage: NI SUBDERMAL, UNKNOWN
     Route: 065
     Dates: start: 20071221, end: 20080926

REACTIONS (1)
  - CEREBROVASCULAR ACCIDENT [None]
